FAERS Safety Report 6240725-9 (Version None)
Quarter: 2009Q2

REPORT INFORMATION
  Report Type: 
  Country: None (occurrence: None)
  Receive Date: 20090623
  Receipt Date: 20090320
  Transmission Date: 20091009
  Serious: No
  Sender: FDA-Public Use
  Company Number: US-ASTRAZENECA-2009UW05110

PATIENT
  Sex: Female

DRUGS (1)
  1. PULMICORT FLEXHALER [Suspect]
     Indication: ASTHMA
     Dosage: 180 UG, 2 PUFFS, TWICE A DAY
     Route: 055

REACTIONS (2)
  - BLOOD PRESSURE SYSTOLIC INCREASED [None]
  - PRODUCT TASTE ABNORMAL [None]
